FAERS Safety Report 9222619 (Version 1)
Quarter: 2013Q2

REPORT INFORMATION
  Report Type: Spontaneous
  Country: US (occurrence: US)
  Receive Date: 20130410
  Receipt Date: 20130410
  Transmission Date: 20140414
  Serious: Yes (Other)
  Sender: FDA-Public Use
  Company Number: US-PFIZER INC-2013108234

PATIENT
  Age: 64 Year
  Sex: Female
  Weight: 67.1 kg

DRUGS (2)
  1. PREMARIN [Suspect]
     Indication: HORMONE LEVEL ABNORMAL
     Dosage: 0.625 MG, 2X/WEEK
     Route: 067
     Dates: start: 2012
  2. CRESTOR [Concomitant]
     Indication: HYPERTENSION
     Dosage: UNK

REACTIONS (2)
  - Coeliac disease [Unknown]
  - Condition aggravated [Unknown]
